FAERS Safety Report 4471844-5 (Version None)
Quarter: 2004Q4

REPORT INFORMATION
  Report Type: 
  Country: None (occurrence: None)
  Receive Date: 20041012
  Receipt Date: 20041005
  Transmission Date: 20050328
  Serious: Yes (Death, Hospitalization)
  Sender: FDA-Public Use
  Company Number: PHBS2004ES13312

PATIENT
  Age: 64 Year
  Sex: Male

DRUGS (8)
  1. CYCLOSPORINE [Suspect]
     Indication: DERMATOMYOSITIS
     Dosage: 2.5 - 3 MG/KG/DAY
     Route: 048
  2. PREDNISONE [Suspect]
     Indication: DERMATOMYOSITIS
     Dosage: 1 MG/KG/DAY
     Route: 048
  3. PREDNISONE [Suspect]
     Route: 048
  4. PREDNISONE [Suspect]
     Dosage: 0.5 - 1 MGKG/DAY
     Route: 048
  5. NORMAL HUMAN IMMUNOGLOBULIN [Suspect]
     Indication: DERMATOMYOSITIS
     Dosage: 2 G, QMO
     Route: 042
  6. AZATHIOPRINE [Suspect]
     Indication: DERMATOMYOSITIS
     Dosage: 100 MG/DAY
  7. CHLOROQUINE [Suspect]
     Indication: DERMATOMYOSITIS
     Dosage: 150 MG/DAY
  8. CYCLOPHOSPHAMIDE [Suspect]
     Indication: DERMATOMYOSITIS

REACTIONS (10)
  - ACUTE MYELOID LEUKAEMIA [None]
  - CONDITION AGGRAVATED [None]
  - DERMATOMYOSITIS [None]
  - DRUG INEFFECTIVE [None]
  - DRUG RESISTANCE [None]
  - MYELODYSPLASTIC SYNDROME [None]
  - PANCYTOPENIA [None]
  - PULMONARY HAEMORRHAGE [None]
  - REFRACTORY ANAEMIA WITH AN EXCESS OF BLASTS [None]
  - THERAPY NON-RESPONDER [None]
